FAERS Safety Report 10568374 (Version 1)
Quarter: 2014Q4

REPORT INFORMATION
  Report Type: Spontaneous
  Country: US (occurrence: None)
  Receive Date: 20141024
  Receipt Date: 20141024
  Transmission Date: 20150529
  Serious: No
  Sender: FDA-Public Use
  Company Number: 1409015

PATIENT
  Sex: Male

DRUGS (1)
  1. ZELBORAF [Suspect]
     Active Substance: VEMURAFENIB
     Indication: METASTATIC MALIGNANT MELANOMA
     Dates: start: 201305

REACTIONS (6)
  - Photosensitivity reaction [None]
  - Erythema [None]
  - Purpura [None]
  - Haemorrhage [None]
  - Rash [None]
  - Skin papilloma [None]
